FAERS Safety Report 7911146-5 (Version None)
Quarter: 2011Q4

REPORT INFORMATION
  Report Type: 
  Country: None (occurrence: None)
  Receive Date: 20111109
  Receipt Date: 20111028
  Transmission Date: 20120403
  Serious: Yes (Other)
  Sender: FDA-Public Use
  Company Number: ESP11000119

PATIENT
  Age: 59 Year
  Sex: Female

DRUGS (2)
  1. OSVICAL D (CALCIUM PIDOLATE, COLECALCIFEROL) [Concomitant]
  2. ACTONEL [Suspect]
     Indication: OSTEOPOROSIS
     Dosage: 35 MG, 1/WEEK, ORAL
     Route: 048
     Dates: start: 20090301, end: 20100601

REACTIONS (2)
  - LOCAL SWELLING [None]
  - SWELLING FACE [None]
